FAERS Safety Report 17011895 (Version 1)
Quarter: 2019Q4

REPORT INFORMATION
  Report Type: Spontaneous
  Country: US (occurrence: US)
  Receive Date: 20191108
  Receipt Date: 20191108
  Transmission Date: 20200122
  Serious: No
  Sender: FDA-Public Use
  Company Number: US-TEVA-2019-US-1132916

PATIENT
  Sex: Female

DRUGS (3)
  1. CLONIDINE. [Concomitant]
     Active Substance: CLONIDINE
     Route: 065
  2. BUPRENORPHINE TRANSDERMAL PATCH [Suspect]
     Active Substance: BUPRENORPHINE
     Dosage: DOSE INCREASED; DOSE STRENGTH: 10 MCG/HR
     Route: 062
  3. BUPRENORPHINE TRANSDERMAL PATCH [Suspect]
     Active Substance: BUPRENORPHINE
     Dosage: DOSE STRENGTH: 10 MCG/HR
     Route: 062

REACTIONS (4)
  - Product adhesion issue [Unknown]
  - Flushing [Unknown]
  - Anxiety [Unknown]
  - Withdrawal syndrome [Unknown]
